FAERS Safety Report 22119328 (Version 3)
Quarter: 2024Q4

REPORT INFORMATION
  Report Type: Spontaneous
  Country: JP (occurrence: JP)
  Receive Date: 20230321
  Receipt Date: 20241203
  Transmission Date: 20250115
  Serious: Yes (Hospitalization, Other)
  Sender: PFIZER
  Company Number: JP-MLMSERVICE-20230310-4149408-1

PATIENT
  Age: 49 Year
  Sex: Male

DRUGS (8)
  1. LEVOFLOXACIN [Suspect]
     Active Substance: LEVOFLOXACIN
     Indication: Pneumonia
     Dosage: 500 MG, DAILY
  2. CEFTRIAXONE [Concomitant]
     Active Substance: CEFTRIAXONE
     Indication: Pneumonia
     Dosage: 1 G, SINGLE (ONLY ONCE)
  3. NORFLOXACIN [Concomitant]
     Active Substance: NORFLOXACIN
     Indication: Pneumonia
     Dosage: 200 MG, DAILY
  4. TEPRENONE [Concomitant]
     Active Substance: TEPRENONE
     Indication: Pneumonia
     Dosage: 150 MG, DAILY
  5. CLOPERASTINE [Concomitant]
     Active Substance: CLOPERASTINE
     Indication: Pneumonia
     Dosage: 30 MG, DAILY
  6. CARBOCYSTEINE [Concomitant]
     Active Substance: CARBOCYSTEINE
     Indication: Pneumonia
     Dosage: 1500 MG, DAILY
  7. AMBROXOL [Concomitant]
     Active Substance: AMBROXOL
     Indication: Pneumonia
     Dosage: 45 MG, DAILY
  8. FAMOTIDINE [Concomitant]
     Active Substance: FAMOTIDINE
     Indication: Pneumonia
     Dosage: 20 MG, DAILY

REACTIONS (1)
  - Toxic encephalopathy [Recovered/Resolved]
